FAERS Safety Report 8046288-X (Version None)
Quarter: 2012Q1

REPORT INFORMATION
  Report Type: 
  Country: None (occurrence: None)
  Receive Date: 20120113
  Receipt Date: 20120111
  Transmission Date: 20120608
  Serious: Yes (Life-Threatening, Hospitalization)
  Sender: FDA-Public Use
  Company Number: GB-ROCHE-1030065

PATIENT
  Age: 64 Year
  Sex: Male

DRUGS (4)
  1. ACTONEL [Concomitant]
  2. RITUXIMAB [Suspect]
     Indication: RHEUMATOID ARTHRITIS
     Dates: start: 20110505, end: 20110519
  3. ACETAMINOPHEN [Concomitant]
  4. ETANERCEPT [Concomitant]
     Dates: start: 20060101, end: 20101201

REACTIONS (3)
  - PULMONARY EMBOLISM [None]
  - LUNG CONSOLIDATION [None]
  - PLEURAL EFFUSION [None]
